FAERS Safety Report 5492122-1 (Version None)
Quarter: 2007Q4

REPORT INFORMATION
  Report Type: 
  Country: None (occurrence: None)
  Receive Date: 20071022
  Receipt Date: 20071015
  Transmission Date: 20080405
  Serious: Yes (Other)
  Sender: FDA-Public Use
  Company Number: US-WYE-H00694407

PATIENT
  Age: 19 Year
  Sex: Female
  Weight: 65.83 kg

DRUGS (1)
  1. ADVIL LIQUI-GELS [Suspect]
     Indication: ARTHRALGIA
     Dosage: 2 GEL CAPSULES ONE TIME
     Route: 048
     Dates: start: 20071013, end: 20071013

REACTIONS (2)
  - RESPIRATORY ARREST [None]
  - URTICARIA [None]
